FAERS Safety Report 17833244 (Version 1)
Quarter: 2020Q2

REPORT INFORMATION
  Report Type: Spontaneous
  Country: SE (occurrence: SE)
  Receive Date: 20200528
  Receipt Date: 20200528
  Transmission Date: 20200714
  Serious: Yes (Hospitalization)
  Sender: FDA-Public Use
  Company Number: SE-ACCORD-183183

PATIENT
  Age: 75 Year
  Sex: Male

DRUGS (31)
  1. IRINOTECAN [Suspect]
     Active Substance: IRINOTECAN
     Indication: OESOPHAGEAL CARCINOMA
     Route: 042
     Dates: start: 20200421, end: 20200421
  2. VANCOCIN [Concomitant]
     Active Substance: VANCOMYCIN HYDROCHLORIDE
     Dates: start: 20200318
  3. OXYNORM [Concomitant]
     Active Substance: OXYCODONE HYDROCHLORIDE
     Dosage: 0.5-1 ML AS REQUIRED, STRENGTH: 10 MG / ML
     Dates: start: 20200322
  4. VIAGRA [Concomitant]
     Active Substance: SILDENAFIL CITRATE
     Dosage: STRENGTH: 100 MG,MAX 1 PER DAY
     Dates: start: 20100726
  5. OXYNORM [Concomitant]
     Active Substance: OXYCODONE HYDROCHLORIDE
     Dosage: 1-2 CAPSULES AS REQUIRED MAX 6 PIECES PER DAY, STRENGTH: 5 MG
     Dates: start: 20200325
  6. BISOLVON [Concomitant]
     Active Substance: BROMHEXINE HYDROCHLORIDE
     Dosage: MAX 15 ML / DAY, STRENGTH: 1.6 MG / ML
     Dates: start: 20191011
  7. OXALIPLATIN. [Suspect]
     Active Substance: OXALIPLATIN
     Indication: OESOPHAGEAL CARCINOMA
     Dosage: DOSE 1 UNIT UNK
     Route: 042
     Dates: start: 20200421, end: 20200421
  8. EMEND [Concomitant]
     Active Substance: APREPITANT
     Dosage: ACCORDING TO SEPARATE TREATMENT SCHEDULE
     Dates: start: 20200402
  9. PRIMPERAN [Concomitant]
     Active Substance: METOCLOPRAMIDE HYDROCHLORIDE
     Dosage: ACCORDING TO SEPARATE TREATMENT SCHEDULE, STRENGTH: 5MG/ML
     Dates: start: 20200402
  10. OXASCAND [Concomitant]
     Active Substance: OXAZEPAM
     Dosage: STRENGTH: 5 MG,MAX 4 PIECES / DAY
     Dates: start: 20191221
  11. INNOHEP [Concomitant]
     Active Substance: TINZAPARIN SODIUM
     Dosage: STRENGTH: 4500 ANTI-XA IU
     Dates: start: 20191010
  12. AMLODIPINE [Concomitant]
     Active Substance: AMLODIPINE BESYLATE
     Dosage: STRENGTH: 10 MG
     Dates: start: 20200310
  13. ESOMEPRAZOLE KRKA [Concomitant]
     Dosage: STRENGTH: 40 MG
     Dates: start: 20191025
  14. BETAPRED [Concomitant]
     Active Substance: BETAMETHASONE SODIUM PHOSPHATE
     Dosage: ACCORDING TO SEPARATE TREATMENT SCHEDULE, STRENGTH: 0.5MG
     Dates: start: 20190822
  15. ACETYLCYSTEINE MEDA [Concomitant]
     Dosage: STRENGTH: 200 MG
     Dates: start: 20190814
  16. CILAXORAL [Concomitant]
     Active Substance: SODIUM PICOSULFATE
     Dosage: STRENGTH: 7.5 MG / ML,ACCORDING TO SEPARATE TREATMENT SCHEDULE
     Dates: start: 20200311
  17. PRIMPERAN [Concomitant]
     Active Substance: METOCLOPRAMIDE HYDROCHLORIDE
     Dosage: ACCORDING TO SEPARATE TREATMENT SCHEDULE, STRENGTH: 10 MG
     Dates: start: 20200402
  18. ALVEDON [Concomitant]
     Active Substance: ACETAMINOPHEN
     Dosage: STRENGTH: 500 MG
     Dates: start: 20200319
  19. OMEPRAZOLE BLUEFISH [Concomitant]
     Active Substance: OMEPRAZOLE
     Dosage: STRENGTH: 20 MG
     Dates: start: 20200402
  20. ONDANSETRON FRESENIUS KABI [Concomitant]
     Dosage: ACCORDING TO SEPARATE TREATMENT SCHEDULE. STRENGTH: 2 MG / ML
     Dates: start: 20200402
  21. GLYCERYL TRINITRATE [Concomitant]
     Active Substance: NITROGLYCERIN
     Route: 060
     Dates: start: 20150705
  22. BETAPRED [Concomitant]
     Active Substance: BETAMETHASONE SODIUM PHOSPHATE
     Dosage: ACCORDING TO SEPARATE TREATMENT SCHEDULE, STRENGTH: 4 MG / ML
     Dates: start: 20200402
  23. SODIUM CHLORIDE EVOLAN [Concomitant]
     Dosage: STRENGTH: 500 MG
     Dates: start: 20191125
  24. CANDEXETIL [Concomitant]
     Active Substance: CANDESARTAN
     Dosage: STRENGTH: 16 MG
     Dates: start: 20200320
  25. SOLUVIT [Concomitant]
     Active Substance: VITAMINS
     Dosage: AS REQUIRED
     Dates: start: 20200212
  26. MOVICOL [Concomitant]
     Active Substance: POLYETHYLENE GLYCOL 3350\POTASSIUM CHLORIDE\SODIUM BICARBONATE\SODIUM CHLORIDE
     Dosage: 1-2 SACHET AS REQUIRED, MAX 4 / DAY
     Dates: start: 20200102
  27. TARGINIQ ER [Concomitant]
     Active Substance: NALOXONE HYDROCHLORIDE\OXYCODONE HYDROCHLORIDE
     Dosage: STRENGTH: 20 MG / 10 MG
     Dates: start: 20200416
  28. VITALIPID [Concomitant]
     Active Substance: ERGOCALCIFEROL\PHYTONADIONE\RETINOL\TOCOPHEROL
     Dosage: AS REQUIRED
     Dates: start: 20200212
  29. ONDANSETRON TEVA [Concomitant]
     Active Substance: ONDANSETRON
     Dosage: ACCORDING TO SEPARATE TREATMENT SCHEDULE, STRENGTH: 8 MG
     Dates: start: 20200402
  30. SOOLANTRA [Concomitant]
     Active Substance: IVERMECTIN
     Dosage: STRENGTH: 10 MG / G, 1 TIME / DAY, DOSE:1 UNIT UNK
     Dates: start: 20171115
  31. BACLOFEN MYLAN [Concomitant]
     Active Substance: BACLOFEN
     Dosage: MAX 15 MG / DAY, STRENGTH: 10 MG
     Dates: start: 20190916

REACTIONS (5)
  - Chest discomfort [Recovered/Resolved]
  - Off label use [Unknown]
  - Vision blurred [Recovered/Resolved]
  - Dizziness [Recovered/Resolved]
  - Temporomandibular joint syndrome [Recovered/Resolved]

NARRATIVE: CASE EVENT DATE: 20200421
